FAERS Safety Report 23285366 (Version 1)
Quarter: 2023Q4

REPORT INFORMATION
  Report Type: Spontaneous
  Country: GB (occurrence: GB)
  Receive Date: 20231211
  Receipt Date: 20231211
  Transmission Date: 20240110
  Serious: Yes (Disabling)
  Sender: FDA-Public Use
  Company Number: None

PATIENT
  Age: 20 Year
  Sex: Male
  Weight: 55 kg

DRUGS (2)
  1. ADALIMUMAB [Suspect]
     Active Substance: ADALIMUMAB\ISOPROPYL ALCOHOL
     Indication: Product used for unknown indication
     Route: 058
     Dates: start: 20201207
  2. CHOLECALCIFEROL [Concomitant]
     Active Substance: CHOLECALCIFEROL
     Indication: Product used for unknown indication
     Dosage: ONE TO BE TAKEN EACH DAY
     Dates: start: 20231016

REACTIONS (44)
  - Alopecia universalis [Not Recovered/Not Resolved]
  - Adverse drug reaction [Unknown]
  - Adverse drug reaction [Unknown]
  - Adverse drug reaction [Unknown]
  - Anal abscess [Unknown]
  - Adverse drug reaction [Unknown]
  - Adverse drug reaction [Unknown]
  - Adverse drug reaction [Unknown]
  - Adverse drug reaction [Unknown]
  - Adverse drug reaction [Unknown]
  - Crohn^s disease [Unknown]
  - Adverse drug reaction [Unknown]
  - Anal abscess [Recovered/Resolved]
  - Alopecia [Unknown]
  - Adverse drug reaction [Unknown]
  - Eczema [Unknown]
  - Asthma [Recovered/Resolved]
  - Adverse drug reaction [Unknown]
  - Adverse drug reaction [Unknown]
  - Anal abscess [Recovered/Resolved]
  - Cholangitis sclerosing [Unknown]
  - Adverse drug reaction [Unknown]
  - Crohn^s disease [Recovered/Resolved]
  - Adverse drug reaction [Unknown]
  - Crohn^s disease [Recovered/Resolved]
  - Adverse drug reaction [Unknown]
  - Adverse drug reaction [Unknown]
  - Adverse drug reaction [Unknown]
  - Adverse drug reaction [Unknown]
  - Crohn^s disease [Recovered/Resolved]
  - Adverse drug reaction [Unknown]
  - Alopecia [Unknown]
  - Asthma [Unknown]
  - Adverse drug reaction [Unknown]
  - Adverse drug reaction [Unknown]
  - Adverse drug reaction [Unknown]
  - Anal abscess [Recovered/Resolved]
  - Adverse drug reaction [Unknown]
  - Seasonal allergy [Unknown]
  - Alopecia [Recovered/Resolved]
  - Crohn^s disease [Recovered/Resolved]
  - Adverse drug reaction [Unknown]
  - Abscess [Recovered/Resolved]
  - Alopecia [Recovered/Resolved]

NARRATIVE: CASE EVENT DATE: 20230309
